FAERS Safety Report 9053527 (Version 2)
Quarter: 2014Q1

REPORT INFORMATION
  Report Type: Report from Study
  Country: BD (occurrence: BD)
  Receive Date: 20130208
  Receipt Date: 20140220
  Transmission Date: 20141002
  Serious: Yes (Death, Other)
  Sender: FDA-Public Use
  Company Number: PHHY2013BD011792

PATIENT
  Age: 86 Year
  Sex: Female

DRUGS (1)
  1. EXELON PATCH [Suspect]
     Indication: DEMENTIA
     Dosage: 4.5 MG, DAILY (5CM2)
     Route: 062
     Dates: start: 200911, end: 201010

REACTIONS (3)
  - Death [Fatal]
  - Dementia [Fatal]
  - Cardiac failure [Unknown]
